FAERS Safety Report 13267382 (Version 1)
Quarter: 2017Q1

REPORT INFORMATION
  Report Type: Report from Study
  Country: CL (occurrence: CL)
  Receive Date: 20170224
  Receipt Date: 20170224
  Transmission Date: 20170428
  Serious: Yes (Death)
  Sender: FDA-Public Use
  Company Number: CL-ROCHE-1897403

PATIENT
  Age: 65 Year
  Sex: Female

DRUGS (1)
  1. ALTEPLASE [Suspect]
     Active Substance: ALTEPLASE
     Indication: ISCHAEMIC STROKE
     Dosage: ADMINISTERED OVER 60MINS; 10% WAS ADMINISTERED BY BOLUS FOR 2MINS AND 90% OVER THE FOLLOWING 58MINS
     Route: 042

REACTIONS (1)
  - Cerebral haemorrhage [Fatal]
